FAERS Safety Report 6111126-9 (Version None)
Quarter: 2009Q1

REPORT INFORMATION
  Report Type: 
  Country: None (occurrence: None)
  Receive Date: 20090311
  Receipt Date: 20090306
  Transmission Date: 20090719
  Serious: Yes (Hospitalization)
  Sender: FDA-Public Use
  Company Number: FR-WYE-G03271909

PATIENT
  Sex: Male

DRUGS (2)
  1. ADVIL [Suspect]
     Dosage: UNKNOWN
     Route: 048
     Dates: start: 20081216, end: 20081217
  2. BRISTOPEN [Suspect]
     Dosage: UNKNOWN
     Route: 048
     Dates: start: 20081216, end: 20081217

REACTIONS (5)
  - ABSCESS [None]
  - CONDITION AGGRAVATED [None]
  - MUSCLE INJURY [None]
  - STAPHYLOCOCCAL INFECTION [None]
  - WOUND [None]
